FAERS Safety Report 19913887 (Version 1)
Quarter: 2021Q4

REPORT INFORMATION
  Report Type: Report from Study
  Country: RO (occurrence: RO)
  Receive Date: 20211004
  Receipt Date: 20211004
  Transmission Date: 20220303
  Serious: Yes (Death, Other)
  Sender: FDA-Public Use
  Company Number: RO-GILEAD-2021-0550750

PATIENT
  Age: 65 Year
  Sex: Female

DRUGS (2)
  1. LEDIPASVIR\SOFOSBUVIR [Suspect]
     Active Substance: LEDIPASVIR\SOFOSBUVIR
     Indication: Hepatitis C
     Dosage: 1 DOSAGE FORM, QD, 90 MG/400MG
     Route: 048
     Dates: start: 20210421, end: 20210713
  2. LEDIPASVIR\SOFOSBUVIR [Suspect]
     Active Substance: LEDIPASVIR\SOFOSBUVIR
     Indication: Hepatic cirrhosis

REACTIONS (1)
  - Death [Fatal]

NARRATIVE: CASE EVENT DATE: 20210923
